FAERS Safety Report 6434387-5 (Version None)
Quarter: 2009Q4

REPORT INFORMATION
  Report Type: 
  Country: None (occurrence: None)
  Receive Date: 20091110
  Receipt Date: 20081006
  Transmission Date: 20100525
  Serious: No
  Sender: FDA-Public Use
  Company Number: US-ASTRAZENECA-2009UW15373

PATIENT
  Age: 87 Year
  Sex: Male

DRUGS (1)
  1. PRILOSEC OTC [Suspect]
     Dosage: 1 TABLET, 1 /DAY FOR 7 DAYS
     Route: 048
     Dates: start: 20080929, end: 20081006

REACTIONS (2)
  - INJURY [None]
  - SKIN LACERATION [None]
